FAERS Safety Report 24415032 (Version 1)
Quarter: 2024Q4

REPORT INFORMATION
  Report Type: Spontaneous
  Country: US (occurrence: US)
  Receive Date: 20241009
  Receipt Date: 20241009
  Transmission Date: 20250115
  Serious: Yes (Death, Life-Threatening, Other)
  Sender: AMGEN
  Company Number: US-AMGEN-USASP2024196270

PATIENT

DRUGS (9)
  1. PREDNISONE [Suspect]
     Active Substance: PREDNISONE
     Indication: Diffuse large B-cell lymphoma
     Dosage: UNK
     Route: 065
  2. PREDNISONE [Suspect]
     Active Substance: PREDNISONE
     Indication: Burkitt^s lymphoma
  3. PREDNISONE [Suspect]
     Active Substance: PREDNISONE
     Indication: Non-Hodgkin^s lymphoma
  4. ETOPOSIDE [Concomitant]
     Active Substance: ETOPOSIDE
     Dosage: DOSES WERE NOT ESCALATED
  5. VINCRISTINE [Concomitant]
     Active Substance: VINCRISTINE
  6. CYCLOPHOSPHAMIDE [Concomitant]
     Active Substance: CYCLOPHOSPHAMIDE
     Dosage: 750 MILLIGRAM/SQ. METER
  7. DOXORUBICIN [Concomitant]
     Active Substance: DOXORUBICIN
     Dosage: DOSES WERE NOT ESCALATED
  8. RITUXIMAB [Concomitant]
     Active Substance: RITUXIMAB
  9. VORINOSTAT [Concomitant]
     Active Substance: VORINOSTAT
     Dosage: 300 MILLIGRAM, ON DAYS 1 TO 5 OF EACH CYCLE

REACTIONS (17)
  - Non-Hodgkin^s lymphoma [Fatal]
  - Burkitt^s lymphoma [Fatal]
  - Diffuse large B-cell lymphoma [Fatal]
  - HIV infection [Fatal]
  - Gastric haemorrhage [Unknown]
  - Atrial fibrillation [Unknown]
  - Adverse event [Unknown]
  - Left ventricular dysfunction [Unknown]
  - Embolism [Unknown]
  - Respiratory failure [Unknown]
  - Neutropenia [Unknown]
  - Thrombocytopenia [Unknown]
  - Febrile neutropenia [Unknown]
  - Neuropathy peripheral [Unknown]
  - Infection [Unknown]
  - Lymphopenia [Unknown]
  - Infestation [Unknown]
